FAERS Safety Report 5103140-7 (Version None)
Quarter: 2006Q3

REPORT INFORMATION
  Report Type: 
  Country: None (occurrence: None)
  Receive Date: 20060908
  Receipt Date: 20060824
  Transmission Date: 20061208
  Serious: Yes (Disabling)
  Sender: FDA-Public Use
  Company Number: 2006106364

PATIENT
  Age: 65 Year
  Sex: Female

DRUGS (4)
  1. CETIRIZINE HCL [Suspect]
     Indication: DRUG USE FOR UNKNOWN INDICATION
  2. FLIXONASE (FLUTICASONE PROPIONATE) [Suspect]
     Indication: CHRONIC SINUSITIS
     Dosage: 400 MG, NASAL
     Route: 045
     Dates: start: 20060710, end: 20060715
  3. THYROXIN (LEVOTHYROXINE) [Concomitant]
  4. WARFARIN [Concomitant]

REACTIONS (1)
  - FALL [None]
